FAERS Safety Report 23687061 (Version 1)
Quarter: 2024Q1

REPORT INFORMATION
  Report Type: Spontaneous
  Country: NL (occurrence: NL)
  Receive Date: 20240329
  Receipt Date: 20240329
  Transmission Date: 20240410
  Serious: Yes (Other)
  Sender: FDA-Public Use
  Company Number: NL-HIKMA PHARMACEUTICALS USA INC.-NL-H14001-24-02521

PATIENT
  Age: 54 Year
  Sex: Male
  Weight: 93.5 kg

DRUGS (4)
  1. CEFTRIAXONE [Suspect]
     Active Substance: CEFTRIAXONE\CEFTRIAXONE SODIUM
     Indication: Joint injection
     Dosage: 1 DOSAGE FORM
     Route: 065
     Dates: start: 20240108, end: 20240120
  2. VANCOMYCIN [Suspect]
     Active Substance: VANCOMYCIN
     Indication: Joint injection
     Dosage: 4000 MILLIGRAM, QD
     Route: 065
     Dates: start: 20240108
  3. ACETAMINOPHEN [Concomitant]
     Active Substance: ACETAMINOPHEN
     Indication: Product used for unknown indication
     Dosage: 500 MILLIGRAM
     Route: 065
  4. SIMVASTATIN [Concomitant]
     Active Substance: SIMVASTATIN
     Indication: Product used for unknown indication
     Dosage: 40 MILLIGRAM
     Route: 065

REACTIONS (1)
  - Vancomycin infusion reaction [Recovered/Resolved]
